FAERS Safety Report 8880371 (Version 1)
Quarter: 2012Q4

REPORT INFORMATION
  Report Type: 
  Country: US (occurrence: US)
  Receive Date: 20121031
  Receipt Date: 20121031
  Transmission Date: 20130627
  Serious: No
  Sender: FDA-Public Use
  Company Number: US-ASTRAZENECA-2012SE79016

PATIENT
  Sex: Female

DRUGS (4)
  1. TOPROL XL [Suspect]
     Indication: BLOOD PRESSURE
     Route: 048
  2. TOPROL XL [Suspect]
     Indication: BLOOD PRESSURE
     Dosage: GENERIC
     Route: 048
  3. ZOCOR [Suspect]
     Route: 048
  4. LOSARDIN [Suspect]
     Route: 048

REACTIONS (11)
  - Myalgia [Unknown]
  - Restless legs syndrome [Unknown]
  - Pain in extremity [Unknown]
  - Cardiac disorder [Unknown]
  - Hypertension [Unknown]
  - Heart rate increased [Unknown]
  - Vision blurred [Unknown]
  - Headache [Unknown]
  - Fatigue [Unknown]
  - Arthralgia [Unknown]
  - Drug ineffective [Unknown]
